FAERS Safety Report 19251135 (Version 2)
Quarter: 2021Q2

REPORT INFORMATION
  Report Type: Report from Study
  Country: ES (occurrence: ES)
  Receive Date: 20210512
  Receipt Date: 20210520
  Transmission Date: 20210717
  Serious: Yes (Hospitalization)
  Sender: FDA-Public Use
  Company Number: ES-EXELIXIS-XL18421040248

PATIENT

DRUGS (9)
  1. PREDNISONE. [Concomitant]
     Active Substance: PREDNISONE
     Dosage: UNK
  2. INNOHEP [Concomitant]
     Active Substance: TINZAPARIN SODIUM
     Indication: PROPHYLAXIS
     Dosage: UNK
  3. OMEPRAZOLE. [Concomitant]
     Active Substance: OMEPRAZOLE
     Indication: PROPHYLAXIS
     Dosage: UNK
  4. XL184 [Suspect]
     Active Substance: CABOZANTINIB
     Indication: CARCINOID TUMOUR PULMONARY
     Dosage: 40 MG
     Dates: start: 20210208
  5. TECENTRIQ [Suspect]
     Active Substance: ATEZOLIZUMAB
     Indication: CARCINOID TUMOUR PULMONARY
     Dosage: 1200 MG
     Dates: start: 20210208
  6. XL184 [Suspect]
     Active Substance: CABOZANTINIB
     Dosage: 20 MG
     Dates: start: 20210405, end: 20210426
  7. METFORMIN [Concomitant]
     Active Substance: METFORMIN HYDROCHLORIDE
     Indication: DIABETES MELLITUS
     Dosage: UNK
  8. SULFAMETOXAZOL/TRIMETOPRIM [Concomitant]
     Active Substance: SULFAMETHOXAZOLE\TRIMETHOPRIM
     Indication: OSTEOPOROSIS
     Dosage: UNK
  9. LORAZEPAM. [Concomitant]
     Active Substance: LORAZEPAM
     Indication: INSOMNIA
     Dosage: UNK

REACTIONS (2)
  - Hypertransaminasaemia [Recovered/Resolved]
  - Pyrexia [Recovered/Resolved]

NARRATIVE: CASE EVENT DATE: 20210505
